FAERS Safety Report 8812614 (Version 1)
Quarter: 2012Q4

REPORT INFORMATION
  Report Type: 
  Country: US (occurrence: US)
  Receive Date: 20120927
  Receipt Date: 20120927
  Transmission Date: 20130627
  Serious: Yes (Death, Other)
  Sender: FDA-Public Use
  Company Number: PHHY2012US083337

PATIENT
  Age: 3 Year
  Sex: Male

DRUGS (5)
  1. CICLOSPORIN [Suspect]
     Indication: PROPHYLAXIS AGAINST GRAFT VERSUS HOST DISEASE
  2. METHOTREXATE [Suspect]
     Indication: PROPHYLAXIS AGAINST GRAFT VERSUS HOST DISEASE
  3. ANTILYMPHOCYTE IMMUNOGLOBULIN (HORSE) [Suspect]
     Indication: PROPHYLAXIS AGAINST GRAFT VERSUS HOST DISEASE
  4. CYCLOPHOSPHAMIDE [Concomitant]
     Dosage: 200 mg/kg, UNK
  5. BUSULFAN [Concomitant]

REACTIONS (4)
  - Acute graft versus host disease [Fatal]
  - Hepatic failure [Fatal]
  - Engraft failure [Unknown]
  - Transplant rejection [Unknown]
